FAERS Safety Report 21401913 (Version 1)
Quarter: 2022Q4

REPORT INFORMATION
  Report Type: Spontaneous
  Country: GB (occurrence: GB)
  Receive Date: 20221003
  Receipt Date: 20221003
  Transmission Date: 20230113
  Serious: Yes (Other)
  Sender: FDA-Public Use
  Company Number: GB-MHRA-MED-202209182113592930-VZJBQ

PATIENT
  Age: 62 Year
  Sex: Female
  Weight: 76 kg

DRUGS (3)
  1. ATORVASTATIN [Suspect]
     Active Substance: ATORVASTATIN
     Indication: Ischaemic stroke
     Dosage: UNK, TABLET
     Route: 065
     Dates: start: 20220627, end: 20220719
  2. CLOPIDOGREL [Concomitant]
     Active Substance: CLOPIDOGREL BISULFATE
     Indication: Ischaemic stroke
     Dosage: UNK
     Route: 065
     Dates: start: 20220627
  3. LANSOPRAZOLE [Concomitant]
     Active Substance: LANSOPRAZOLE
     Indication: Ischaemic stroke
     Dosage: UNK
     Route: 065
     Dates: start: 20220727

REACTIONS (1)
  - Hepatic function abnormal [Recovering/Resolving]

NARRATIVE: CASE EVENT DATE: 20220716
